FAERS Safety Report 8317688-5 (Version None)
Quarter: 2012Q2

REPORT INFORMATION
  Report Type: 
  Country: None (occurrence: None)
  Receive Date: 20120427
  Receipt Date: 20090708
  Transmission Date: 20120825
  Serious: No
  Sender: FDA-Public Use
  Company Number: US-TEVA-2009008243

PATIENT
  Weight: 106.69 kg

DRUGS (7)
  1. MORPHINE [Concomitant]
     Indication: BACK PAIN
     Dates: start: 20030101
  2. ASPIRIN [Concomitant]
     Dates: start: 20070101
  3. CYMBALTA [Concomitant]
     Indication: DEPRESSION
     Dates: start: 20070101
  4. SPIRIVA [Concomitant]
     Indication: ASTHMA
     Dates: start: 20080101
  5. AVINZA [Concomitant]
     Indication: BACK PAIN
     Dates: start: 20070101
  6. NUVIGIL [Suspect]
     Indication: DEPRESSION
     Dosage: 250 MILLIGRAM;
     Route: 048
     Dates: start: 20090707
  7. BETAPACE [Concomitant]
     Indication: ATRIAL FIBRILLATION
     Dates: start: 20070101

REACTIONS (1)
  - ATRIAL FIBRILLATION [None]
